FAERS Safety Report 9137249 (Version 2)
Quarter: 2014Q1

REPORT INFORMATION
  Report Type: Spontaneous
  Country: US (occurrence: US)
  Receive Date: 20130219
  Receipt Date: 20140213
  Transmission Date: 20141002
  Serious: No
  Sender: FDA-Public Use
  Company Number: US-BRISTOL-MYERS SQUIBB COMPANY-17144635

PATIENT
  Age: 54 Year
  Sex: Female

DRUGS (2)
  1. ORENCIA FOR INJ 250 MG/VIAL [Suspect]
     Indication: RHEUMATOID ARTHRITIS
     Dosage: LAST INF 5NOV12,5FEB13.INJ ,POWDER,LYPHOLIZED,FOR SOL.VIAL AND SYRINGE?SUBQ FORM ALSO TAKEN.
     Route: 042
     Dates: end: 201301
  2. ABATACEPT SUBQ INJECTION 125MG/ML [Suspect]
     Dates: start: 201301

REACTIONS (3)
  - Therapeutic response decreased [Unknown]
  - Weight decreased [Unknown]
  - Feeling abnormal [Unknown]
